FAERS Safety Report 5816047-4 (Version None)
Quarter: 2008Q3

REPORT INFORMATION
  Report Type: 
  Country: None (occurrence: None)
  Receive Date: 20080721
  Receipt Date: 20080710
  Transmission Date: 20090109
  Serious: Yes (Hospitalization)
  Sender: FDA-Public Use
  Company Number: ES-ELI_LILLY_AND_COMPANY-ES200807002510

PATIENT
  Age: 77 Year
  Sex: Female

DRUGS (4)
  1. FORTEO [Suspect]
     Indication: OSTEOPOROSIS
     Dosage: 20 UG, UNK
     Route: 058
     Dates: start: 20080101, end: 20080611
  2. FORTEO [Suspect]
     Dosage: 20 UG, UNK
     Route: 058
     Dates: start: 20080614
  3. DIAZEPAM [Concomitant]
     Indication: DEPRESSION
     Dosage: UNK, UNK
  4. CALCIUM [Concomitant]
     Indication: OSTEOPOROSIS
     Dosage: UNK, UNK

REACTIONS (4)
  - ABDOMINAL PAIN [None]
  - DIVERTICULITIS [None]
  - GASTROINTESTINAL INFECTION [None]
  - INTESTINAL OBSTRUCTION [None]
